FAERS Safety Report 7475592-9 (Version None)
Quarter: 2011Q2

REPORT INFORMATION
  Report Type: 
  Country: None (occurrence: None)
  Receive Date: 20110512
  Receipt Date: 20110429
  Transmission Date: 20111010
  Serious: Yes (Other)
  Sender: FDA-Public Use
  Company Number: US-CELGENEUS-163-20785-11033353

PATIENT
  Age: 62 Year
  Sex: Female

DRUGS (8)
  1. DEXAMETHASONE [Suspect]
     Route: 065
  2. FILGRASTIM [Concomitant]
     Dosage: 10 MICROGRAM
     Route: 058
  3. CYCLOPHOSPHAMIDE [Concomitant]
     Dosage: G/M2
     Route: 051
  4. BORTEZOMIB [Suspect]
     Route: 065
  5. MELPHALAN HYDROCHLORIDE [Suspect]
     Route: 051
  6. PREDNISONE [Suspect]
     Route: 065
  7. THALOMID [Suspect]
     Route: 048
  8. AMIFOSTINE [Concomitant]
     Dosage: 740 MILLIGRAM/SQ. METER
     Route: 051

REACTIONS (1)
  - ACUTE GRAFT VERSUS HOST DISEASE IN INTESTINE [None]
